FAERS Safety Report 8282871-4 (Version None)
Quarter: 2012Q2

REPORT INFORMATION
  Report Type: 
  Country: None (occurrence: None)
  Receive Date: 20120413
  Receipt Date: 20120401
  Transmission Date: 20120825
  Serious: Yes (Disabling)
  Sender: FDA-Public Use
  Company Number: CA-ROCHE-1055620

PATIENT
  Age: 48 Year
  Sex: Female

DRUGS (11)
  1. SYNTHROID [Concomitant]
     Route: 065
  2. AMITRIPTYLINE HCL [Concomitant]
     Route: 048
  3. SPIRONOLACTONE [Concomitant]
     Route: 048
  4. VITAMIN D [Concomitant]
     Route: 065
  5. AVASTIN [Suspect]
     Indication: PRODUCT USED FOR UNKNOWN INDICATION
     Route: 047
  6. LANTUS [Concomitant]
     Dosage: SOLUTION
     Route: 058
  7. MULTI-VITAMIN [Concomitant]
     Route: 065
  8. HYDROCHLOROTHIAZIDE [Concomitant]
     Route: 048
  9. RANITIDINE [Concomitant]
     Route: 048
  10. AVASTIN [Suspect]
     Route: 047
  11. NOVORAPID [Concomitant]
     Route: 065

REACTIONS (5)
  - EYE PAIN [None]
  - EYELASH THICKENING [None]
  - OCULAR HYPERAEMIA [None]
  - EYELID OEDEMA [None]
  - NEURALGIA [None]
